FAERS Safety Report 21286806 (Version 2)
Quarter: 2022Q3

REPORT INFORMATION
  Report Type: Report from Study
  Country: GB (occurrence: None)
  Receive Date: 20220902
  Receipt Date: 20220922
  Transmission Date: 20221027
  Serious: Yes (Death, Hospitalization, Disabling)
  Sender: FDA-Public Use
  Company Number: GB-ROCHE-3171674

PATIENT
  Age: 75 Year
  Sex: Male
  Weight: 61 kg

DRUGS (7)
  1. ATEZOLIZUMAB [Suspect]
     Active Substance: ATEZOLIZUMAB
     Indication: Pleural mesothelioma malignant
     Dosage: D1 1200 MG/20 ML?MOST RECENT DOSE WAS ON 27/MAY/2022
     Route: 042
     Dates: start: 20211112
  2. CARBOPLATIN [Suspect]
     Active Substance: CARBOPLATIN
     Indication: Pleural mesothelioma malignant
     Dosage: D1 4-6 CYCLES?MOST RECENT DOSE WAS ON 06/MAY/2022
     Route: 042
     Dates: start: 20211112
  3. PEMETREXED [Suspect]
     Active Substance: PEMETREXED
     Indication: Pleural mesothelioma malignant
     Dosage: D1 4-6 CYCLES?MOST RECENT DOSE WAS ON 21/JAN/2022
     Route: 042
     Dates: start: 20211112
  4. BEVACIZUMAB [Suspect]
     Active Substance: BEVACIZUMAB
     Indication: Pleural mesothelioma malignant
     Dosage: D1 400 MG/16 ML?MOST RECENT DOSE WAS ON 27/MAY/2022
     Route: 042
     Dates: start: 20211112
  5. BISOPROLOL [Concomitant]
     Active Substance: BISOPROLOL
  6. OMEPRAZOLE [Concomitant]
     Active Substance: OMEPRAZOLE
  7. LEVOTHYROXINE [Concomitant]
     Active Substance: LEVOTHYROXINE

REACTIONS (2)
  - Myocarditis [Fatal]
  - Acute kidney injury [Fatal]

NARRATIVE: CASE EVENT DATE: 20220715
